FAERS Safety Report 13393001 (Version 1)
Quarter: 2017Q1

REPORT INFORMATION
  Report Type: Spontaneous
  Country: ES (occurrence: ES)
  Receive Date: 20170331
  Receipt Date: 20170331
  Transmission Date: 20170429
  Serious: Yes (Other)
  Sender: FDA-Public Use
  Company Number: ES-PFIZER INC-2017135856

PATIENT
  Age: 58 Year
  Sex: Female
  Weight: 57 kg

DRUGS (3)
  1. ONDANSETRON [Suspect]
     Active Substance: ONDANSETRON
     Dosage: 4 MG, 2X/DAY (8 MG INTRAVENOUS SINGLE DOSE AND 4 MG EVERY 12 HOURS VIA ORAL)
     Route: 048
     Dates: start: 20170130, end: 20170202
  2. VINCRISTINA PFIZER [Suspect]
     Active Substance: VINCRISTINE
     Dosage: 2 MG, SINGLE
     Route: 042
     Dates: start: 20170130, end: 20170130
  3. ONDANSETRON [Suspect]
     Active Substance: ONDANSETRON
     Indication: PROPHYLAXIS OF NAUSEA AND VOMITING
     Dosage: 4 MG, 2X/DAY (8 MG INTRAVENOUS SINGLE DOSE AND 4 MG EVERY 12 HOURS VIA ORAL)
     Route: 042
     Dates: start: 20170130, end: 20170130

REACTIONS (1)
  - Ileus paralytic [Recovered/Resolved]

NARRATIVE: CASE EVENT DATE: 20170212
